FAERS Safety Report 14638007 (Version 1)
Quarter: 2018Q1

REPORT INFORMATION
  Report Type: Spontaneous
  Country: US (occurrence: US)
  Receive Date: 20180314
  Receipt Date: 20180314
  Transmission Date: 20180509
  Serious: No
  Sender: FDA-Public Use
  Company Number: US-VYERA PHARMACEUTICALS, LLC-2017TNG00012

PATIENT
  Sex: Female

DRUGS (8)
  1. DULOXETINE. [Concomitant]
     Active Substance: DULOXETINE
  2. VERAPAMIL [Concomitant]
     Active Substance: VERAPAMIL HYDROCHLORIDE
  3. DARAPRIM [Suspect]
     Active Substance: PYRIMETHAMINE
     Dosage: 25 MG, 1X/DAY
     Route: 048
     Dates: start: 20160220
  4. MIRTAZAPINE. [Concomitant]
     Active Substance: MIRTAZAPINE
  5. LEUCOVORIN. [Concomitant]
     Active Substance: LEUCOVORIN
  6. AZITHROMYCIN ANHYDROUS. [Concomitant]
     Active Substance: AZITHROMYCIN ANHYDROUS
  7. FAMCICLOVIR. [Concomitant]
     Active Substance: FAMCICLOVIR
  8. ZOLPIDEM [Concomitant]
     Active Substance: ZOLPIDEM\ZOLPIDEM TARTRATE

REACTIONS (6)
  - Cardiac discomfort [Unknown]
  - Sensory disturbance [Unknown]
  - Fatigue [Unknown]
  - Pyrexia [Unknown]
  - Anxiety [Unknown]
  - Neuropathy peripheral [Unknown]

NARRATIVE: CASE EVENT DATE: 2017
